FAERS Safety Report 15579716 (Version 1)
Quarter: 2018Q4

REPORT INFORMATION
  Report Type: Spontaneous
  Country: US (occurrence: US)
  Receive Date: 20181102
  Receipt Date: 20181102
  Transmission Date: 20190205
  Serious: Yes (Death, Hospitalization, Other)
  Sender: FDA-Public Use
  Company Number: US-SMITH AND NEPHEW, INC-2018SMT00150

PATIENT
  Sex: Male
  Weight: 95.24 kg

DRUGS (3)
  1. UNSPECIFIED THYROID MEDICATIONS [Concomitant]
  2. UNSPECIFIED HEART MEDICATIONS [Concomitant]
     Active Substance: UNSPECIFIED INGREDIENT
  3. COLLAGENASE SANTYL [Suspect]
     Active Substance: COLLAGENASE CLOSTRIDIUM HISTOLYTICUM
     Indication: RASH
     Dosage: UNK UNK, 1X/DAY
     Route: 061
     Dates: end: 201612

REACTIONS (4)
  - Cardiac disorder [Fatal]
  - Dementia Alzheimer^s type [Unknown]
  - Hospitalisation [Unknown]
  - Off label use [Unknown]

NARRATIVE: CASE EVENT DATE: 2016
